FAERS Safety Report 15326532 (Version 1)
Quarter: 2018Q3

REPORT INFORMATION
  Report Type: Spontaneous
  Country: US (occurrence: US)
  Receive Date: 20180823
  Receipt Date: 20180823
  Transmission Date: 20181010
  Serious: Yes (Other)
  Sender: FDA-Public Use
  Company Number: None

PATIENT
  Age: 67 Year
  Sex: Female
  Weight: 55.79 kg

DRUGS (1)
  1. SALSALATE 750MG TABLET [Suspect]
     Active Substance: SALSALATE
     Indication: ARTHRITIS
     Dosage: TWO TABLETS TWICEW DAILY ORALLY
     Route: 048
     Dates: start: 20180805, end: 20180809

REACTIONS (5)
  - Visual impairment [None]
  - Deafness [None]
  - Fatigue [None]
  - Malaise [None]
  - Balance disorder [None]

NARRATIVE: CASE EVENT DATE: 20180806
